FAERS Safety Report 6371278-2 (Version None)
Quarter: 2009Q3

REPORT INFORMATION
  Report Type: 
  Country: None (occurrence: None)
  Receive Date: 20090923
  Receipt Date: 20090922
  Transmission Date: 20100115
  Serious: Yes (Life-Threatening, Other)
  Sender: FDA-Public Use
  Company Number: UA-BRISTOL-MYERS SQUIBB COMPANY-14706725

PATIENT
  Age: 50 Year
  Sex: Female
  Weight: 51 kg

DRUGS (5)
  1. CISPLATIN [Suspect]
     Indication: NON-SMALL CELL LUNG CANCER
     Route: 042
     Dates: start: 20090414, end: 20090618
  2. AXITINIB [Suspect]
     Indication: NON-SMALL CELL LUNG CANCER
     Dosage: INTERRUPTED ON 03JUN09 04JUN09-18JUN09:3MG, 2/DAY RESTARTED ON 08JUL09 WITH 2MG DOSE.
     Route: 048
     Dates: start: 20090414
  3. GEMZAR [Suspect]
     Indication: NON-SMALL CELL LUNG CANCER
     Dosage: DAY 1 + DAY 8 EVERY 3 WEEKS
     Route: 048
     Dates: start: 20090414, end: 20090618
  4. ONDANSETRON [Concomitant]
     Dosage: FROM 01JUN09-11JUN09 FROM 18JUN09-26JUN09.
     Dates: start: 20090601, end: 20090626
  5. METOCLOPRAMIDE [Concomitant]
     Dosage: FROM 01JUN09-11JUN09 FROM 18JUN09-26JUN09.
     Dates: start: 20090601, end: 20090626

REACTIONS (1)
  - DEHYDRATION [None]
